FAERS Safety Report 18483920 (Version 3)
Quarter: 2021Q4

REPORT INFORMATION
  Report Type: Report from Study
  Country: US (occurrence: US)
  Receive Date: 20201110
  Receipt Date: 20211229
  Transmission Date: 20220303
  Serious: Yes (Hospitalization, Other)
  Sender: FDA-Public Use
  Company Number: US-ABBVIE-20K-163-3252351-00

PATIENT
  Age: 60 Year
  Sex: Male

DRUGS (2)
  1. HUMIRA [Suspect]
     Active Substance: ADALIMUMAB
     Indication: Psoriatic arthropathy
     Dosage: CITRATE FREE
     Route: 058
  2. HUMIRA [Suspect]
     Active Substance: ADALIMUMAB
     Indication: Psoriasis

REACTIONS (11)
  - Knee arthroplasty [Recovered/Resolved]
  - Gastroenteritis salmonella [Recovered/Resolved]
  - Renal cancer [Unknown]
  - Post procedural complication [Unknown]
  - Joint swelling [Unknown]
  - Contusion [Unknown]
  - Illness [Unknown]
  - Unevaluable event [Recovering/Resolving]
  - Arthralgia [Unknown]
  - Weight increased [Unknown]
  - Diabetes mellitus [Unknown]

NARRATIVE: CASE EVENT DATE: 20190501
